FAERS Safety Report 12727189 (Version 1)
Quarter: 2016Q3

REPORT INFORMATION
  Report Type: Spontaneous
  Country: IR (occurrence: IR)
  Receive Date: 20160909
  Receipt Date: 20160909
  Transmission Date: 20161109
  Serious: Yes (Hospitalization)
  Sender: FDA-Public Use
  Company Number: IR-GLENMARK PHARMACEUTICALS INC, USA.-2016GMK024196

PATIENT

DRUGS (2)
  1. TOPIRAMATE. [Suspect]
     Active Substance: TOPIRAMATE
     Indication: ESSENTIAL TREMOR
     Dosage: 50 MG, QD
     Route: 065
  2. PROPANOLOL                         /00030001/ [Concomitant]
     Active Substance: PROPRANOLOL HYDROCHLORIDE
     Indication: EYE DISORDER
     Dosage: 40 MG, QD
     Route: 065

REACTIONS (2)
  - Choroidal detachment [Recovered/Resolved]
  - Drug hypersensitivity [Unknown]
